FAERS Safety Report 24712960 (Version 1)
Quarter: 2024Q4

REPORT INFORMATION
  Report Type: Spontaneous
  Country: US (occurrence: None)
  Receive Date: 20241208
  Receipt Date: 20241208
  Transmission Date: 20250115
  Serious: Yes (Disabling)
  Sender: Public
  Company Number: None

PATIENT
  Age: 74 Year
  Sex: Female
  Weight: 52.65 kg

DRUGS (6)
  1. SKYRIZI [Suspect]
     Active Substance: RISANKIZUMAB-RZAA
     Indication: Crohn^s disease
     Dates: start: 20241204
  2. METOPROLOL [Concomitant]
     Active Substance: METOPROLOL
  3. GABAPENTIN [Concomitant]
     Active Substance: GABAPENTIN
  4. CALCIUM CARBONATE [Concomitant]
     Active Substance: CALCIUM CARBONATE
  5. VITAMIN E [Concomitant]
     Active Substance: .ALPHA.-TOCOPHEROL
  6. Multivitmain [Concomitant]

REACTIONS (2)
  - Swollen tongue [None]
  - Glossodynia [None]

NARRATIVE: CASE EVENT DATE: 20241205
